FAERS Safety Report 5477885-3 (Version None)
Quarter: 2007Q4

REPORT INFORMATION
  Report Type: 
  Country: None (occurrence: None)
  Receive Date: 20071005
  Receipt Date: 20070926
  Transmission Date: 20080405
  Serious: Yes (Hospitalization)
  Sender: FDA-Public Use
  Company Number: NO-ALLERGAN-0710621US

PATIENT
  Sex: Male

DRUGS (5)
  1. BOTOX [Suspect]
     Indication: SALIVARY HYPERSECRETION
     Dosage: 60 UNITS, SINGLE
     Dates: start: 20070406, end: 20070406
  2. ENALAPRIL MALEATE [Concomitant]
     Indication: HYPERTENSION
     Dosage: 1 DOSE FORM DAILY
     Route: 048
  3. ENANTON DEPOT SET [Concomitant]
     Indication: PROSTATE CANCER
     Dosage: EVERY 3 MONTHS
     Route: 058
  4. ALLOPUR [Concomitant]
     Indication: GOUT
     Dosage: 100 MG, TID
     Route: 048
  5. HYDROCHLOROTHIAZIDE [Concomitant]

REACTIONS (2)
  - DYSPHAGIA [None]
  - MUSCULAR WEAKNESS [None]
